FAERS Safety Report 6181053-X (Version None)
Quarter: 2009Q2

REPORT INFORMATION
  Report Type: 
  Country: None (occurrence: None)
  Receive Date: 20090504
  Receipt Date: 20090504
  Transmission Date: 20091009
  Serious: Yes (Hospitalization)
  Sender: FDA-Public Use
  Company Number: None

PATIENT
  Age: 87 Year
  Sex: Male
  Weight: 77.1115 kg

DRUGS (2)
  1. PHENERGAN [Suspect]
     Indication: NAUSEA
     Dates: start: 20081031, end: 20081031
  2. PHENERGAN [Suspect]
     Indication: VERTIGO
     Dates: start: 20081031, end: 20081031

REACTIONS (6)
  - AMNESIA [None]
  - CEREBROVASCULAR ACCIDENT [None]
  - CONTUSION [None]
  - DYSTONIA [None]
  - FALL [None]
  - LACERATION [None]
